FAERS Safety Report 9191659 (Version 1)
Quarter: 2013Q1

REPORT INFORMATION
  Report Type: Spontaneous
  Country: CA (occurrence: CA)
  Receive Date: 20130326
  Receipt Date: 20130326
  Transmission Date: 20140127
  Serious: Yes (Death, Hospitalization)
  Sender: FDA-Public Use
  Company Number: PHHY2013CA029208

PATIENT
  Age: 64 Year
  Sex: Female

DRUGS (3)
  1. DOCETAXEL [Suspect]
     Indication: BREAST CANCER METASTATIC
     Dosage: 75 MG/M2, UNK
  2. PAMIDRONATE [Concomitant]
     Indication: BREAST CANCER METASTATIC
     Dosage: 90 MG, EVERY THREE WEEKS
  3. CIPROFLOXACIN [Concomitant]
     Indication: ESCHERICHIA INFECTION

REACTIONS (5)
  - Pneumonitis [Fatal]
  - Pyrexia [Fatal]
  - Dyspnoea [Fatal]
  - Lung infiltration [Fatal]
  - Hypotension [Unknown]
